FAERS Safety Report 9499604 (Version 1)
Quarter: 2013Q3

REPORT INFORMATION
  Report Type: Spontaneous
  Country: GB (occurrence: None)
  Receive Date: 20130903
  Receipt Date: 20130903
  Transmission Date: 20140515
  Serious: Yes (Hospitalization)
  Sender: FDA-Public Use
  Company Number: AUR-APL-2013-07112

PATIENT
  Age: 85 Year
  Sex: Female

DRUGS (6)
  1. CITALOPRAM [Suspect]
     Indication: PRODUCT USED FOR UNKNOWN INDICATION
     Dosage: 20 MG (20 MG, 1 IN 1 D), ORAL
     Route: 048
     Dates: end: 20130424
  2. OMEPRAZOLE [Suspect]
     Indication: DUODENAL ULCER
     Dosage: 40 MG (40 MG, 1 IN 1 D), ORAL
     Route: 048
     Dates: end: 20130424
  3. INDAPAMIDE [Suspect]
     Indication: PRODUCT USED FOR UNKNOWN INDICATION
     Dosage: 1.5 MG (1.5 MG 1 IN 1 D), ORAL
     Route: 048
     Dates: end: 20130424
  4. CHLORPHENIRAMINE (CHLORPHENAMINE) [Concomitant]
  5. PARACETAMOL (PARACETAMOL) [Concomitant]
  6. SIMVASTATIN (SIMVASTATIN) [Concomitant]

REACTIONS (4)
  - Mobility decreased [None]
  - Diarrhoea [None]
  - Hypokalaemia [None]
  - Hyponatraemia [None]
